FAERS Safety Report 18660767 (Version 1)
Quarter: 2020Q4

REPORT INFORMATION
  Report Type: Report from Study
  Country: None (occurrence: DE)
  Receive Date: 20201224
  Receipt Date: 20201224
  Transmission Date: 20210114
  Serious: Yes (Hospitalization)
  Sender: FDA-Public Use
  Company Number: DE-ABBVIE-20K-062-3704238-00

PATIENT

DRUGS (2)
  1. RINVOQ [Suspect]
     Active Substance: UPADACITINIB
     Indication: PRODUCT USED FOR UNKNOWN INDICATION
     Route: 048
     Dates: start: 202002, end: 2020
  2. MTX [Concomitant]
     Active Substance: METHOTREXATE SODIUM
     Indication: PRODUCT USED FOR UNKNOWN INDICATION
     Dates: start: 202008

REACTIONS (15)
  - Contusion [Unknown]
  - Condition aggravated [Unknown]
  - Joint range of motion decreased [Unknown]
  - Nervous system disorder [Unknown]
  - Fall [Unknown]
  - Fatigue [Recovering/Resolving]
  - Arthralgia [Unknown]
  - Drug intolerance [Unknown]
  - Arthralgia [Unknown]
  - Nausea [Unknown]
  - Arthritis [Unknown]
  - Rheumatic disorder [Unknown]
  - Dizziness [Recovered/Resolved]
  - Musculoskeletal stiffness [Recovering/Resolving]
  - Therapeutic product effect incomplete [Unknown]

NARRATIVE: CASE EVENT DATE: 2020
